FAERS Safety Report 7946477-6 (Version None)
Quarter: 2011Q4

REPORT INFORMATION
  Report Type: 
  Country: None (occurrence: None)
  Receive Date: 20111129
  Receipt Date: 20111117
  Transmission Date: 20120403
  Serious: Yes (Hospitalization)
  Sender: FDA-Public Use
  Company Number: US-US-EMD SERONO, INC.-7098405

PATIENT
  Sex: Male

DRUGS (6)
  1. NORVIR [Concomitant]
     Indication: ANTIRETROVIRAL THERAPY
  2. SEROSTIM [Suspect]
     Indication: LENTIVIRUS TEST POSITIVE
  3. TRUVADA [Concomitant]
     Indication: ANTIRETROVIRAL THERAPY
  4. VIRAMUNE [Concomitant]
     Indication: ANTIRETROVIRAL THERAPY
  5. REYATAZ [Concomitant]
     Indication: ANTIRETROVIRAL THERAPY
  6. ANDROGEL [Concomitant]
     Indication: ANTIRETROVIRAL THERAPY

REACTIONS (2)
  - DEVICE RELATED INFECTION [None]
  - NEPHROLITHIASIS [None]
